FAERS Safety Report 20850616 (Version 5)
Quarter: 2022Q4

REPORT INFORMATION
  Report Type: Spontaneous
  Country: US (occurrence: US)
  Receive Date: 20220519
  Receipt Date: 20221213
  Transmission Date: 20230112
  Serious: No
  Sender: FDA-Public Use
  Company Number: US-PFIZER INC-202200106609

PATIENT
  Age: 88 Year
  Sex: Female

DRUGS (2)
  1. IBRANCE [Suspect]
     Active Substance: PALBOCICLIB
     Dosage: 75 MG, CYCLIC (14 DAYS FOLLOWED BY 14 DAYS OFF TREATMENT)
     Route: 048
  2. IBRANCE [Suspect]
     Active Substance: PALBOCICLIB
     Dosage: 100 MG CYCLIC (14 DAYS FOLLOWED BY 14 DAYS OFF TREATMENT, QUANTITY UNITS : 14 TABLET)
     Route: 048

REACTIONS (2)
  - Off label use [Unknown]
  - Hypoacusis [Unknown]
